FAERS Safety Report 16750674 (Version 1)
Quarter: 2019Q3

REPORT INFORMATION
  Report Type: Spontaneous
  Country: US (occurrence: US)
  Receive Date: 20190828
  Receipt Date: 20190828
  Transmission Date: 20191005
  Serious: Yes (Life-Threatening, Hospitalization, Other)
  Sender: FDA-Public Use
  Company Number: US-HIKMA PHARMACEUTICALS USA INC.-US-H14001-19-46691

PATIENT
  Age: 78 Year
  Sex: Female

DRUGS (3)
  1. ENALAPRIL [Suspect]
     Active Substance: ENALAPRIL
     Indication: ISCHAEMIC STROKE
     Route: 048
  2. FLECAINIDE [Suspect]
     Active Substance: FLECAINIDE
     Indication: ATRIAL FIBRILLATION
     Dosage: LOW DOSE
     Route: 065
  3. HYDROCHLOROTHIAZIDE. [Suspect]
     Active Substance: HYDROCHLOROTHIAZIDE
     Indication: ISCHAEMIC STROKE
     Route: 065

REACTIONS (6)
  - Sinus bradycardia [Recovered/Resolved]
  - Toxicity to various agents [Recovered/Resolved]
  - Blood pressure decreased [Recovered/Resolved]
  - Renal injury [Recovered/Resolved]
  - Hyponatraemia [Recovered/Resolved]
  - Electrocardiogram QRS complex prolonged [Recovered/Resolved]
